FAERS Safety Report 5189101-0 (Version None)
Quarter: 2006Q4

REPORT INFORMATION
  Report Type: 
  Country: None (occurrence: None)
  Receive Date: 20061218
  Receipt Date: 20061212
  Transmission Date: 20070319
  Serious: Yes (Other)
  Sender: FDA-Public Use
  Company Number: 163-21880-06110779

PATIENT
  Age: 70 Year
  Sex: Male

DRUGS (7)
  1. REVLIMID [Suspect]
     Indication: MYELODYSPLASTIC SYNDROME
     Dosage: 5 MG, QD X 21 DAYS THEN 7 DAYS OFF, ORAL
     Route: 048
     Dates: start: 20060823
  2. BONIVA (IBANDRONATE SODIUM) [Concomitant]
  3. EXJADE [Concomitant]
  4. LYRICA [Concomitant]
  5. VIAGRA [Concomitant]
  6. PREDNISONE TAB [Concomitant]
  7. ATIVAN [Concomitant]

REACTIONS (3)
  - INTERVERTEBRAL DISC COMPRESSION [None]
  - SNEEZING [None]
  - SPINAL COMPRESSION FRACTURE [None]
